FAERS Safety Report 22228053 (Version 2)
Quarter: 2023Q2

REPORT INFORMATION
  Report Type: Report from Study
  Country: US (occurrence: US)
  Receive Date: 20230419
  Receipt Date: 20230426
  Transmission Date: 20230722
  Serious: No
  Sender: FDA-Public Use
  Company Number: US-BoehringerIngelheim-2023-BI-232492

PATIENT
  Age: 73 Year
  Sex: Male

DRUGS (2)
  1. OFEV [Suspect]
     Active Substance: NINTEDANIB
     Indication: Idiopathic pulmonary fibrosis
     Route: 048
     Dates: start: 20230304
  2. OFEV [Suspect]
     Active Substance: NINTEDANIB
     Dates: start: 20230328

REACTIONS (3)
  - Constipation [Not Recovered/Not Resolved]
  - Weight decreased [Unknown]
  - Hyperphagia [Unknown]

NARRATIVE: CASE EVENT DATE: 20230310
